FAERS Safety Report 15695006 (Version 1)
Quarter: 2018Q4

REPORT INFORMATION
  Report Type: Spontaneous
  Country: US (occurrence: US)
  Receive Date: 20181206
  Receipt Date: 20181206
  Transmission Date: 20190205
  Serious: No
  Sender: FDA-Public Use
  Company Number: US-LEXICON PHARMACEUTICALS, INC-18-1606-01493

PATIENT
  Sex: Female

DRUGS (6)
  1. FISH OIL [Concomitant]
     Active Substance: FISH OIL
  2. ASPIRIN BABY [Concomitant]
     Active Substance: ASPIRIN
  3. MULTIVITAMIN [Concomitant]
     Active Substance: VITAMINS
  4. LEVOXYL [Concomitant]
     Active Substance: LEVOTHYROXINE SODIUM
  5. RIZATRIPTAN. [Concomitant]
     Active Substance: RIZATRIPTAN
  6. TELOTRISTAT ETHYL [Suspect]
     Active Substance: TELOTRISTAT ETHYL
     Indication: CARCINOID TUMOUR OF THE GASTROINTESTINAL TRACT
     Route: 048
     Dates: start: 20181107

REACTIONS (1)
  - Alopecia [Unknown]
